FAERS Safety Report 5853461-5 (Version None)
Quarter: 2008Q3

REPORT INFORMATION
  Report Type: 
  Country: None (occurrence: None)
  Receive Date: 20080820
  Receipt Date: 20080807
  Transmission Date: 20090109
  Serious: Yes (Hospitalization)
  Sender: FDA-Public Use
  Company Number: 2008-181830 - NL

PATIENT
  Age: 73 Year
  Sex: Female

DRUGS (10)
  1. ROCURONIUM BROMIDE [Suspect]
     Indication: HYPOTONIA
     Dosage: 40 MG ONCE
     Route: 040
     Dates: start: 20080624, end: 20080624
  2. PROPOFOL [Concomitant]
  3. REMIFENTANIL HYDROCHLORIDE [Concomitant]
  4. ALENDRONATE SODIUM [Concomitant]
  5. MAGNESUM OXIDE [Concomitant]
  6. DIMETICONE [Concomitant]
  7. PURSENNID [Concomitant]
  8. NOTRIPTYLINE HYDROCHLORIDE [Concomitant]
  9. GABAPENTIN [Concomitant]
  10. FAMOTIDINE [Concomitant]

REACTIONS (4)
  - ALANINE AMINOTRANSFERASE INCREASED [None]
  - ASPARTATE AMINOTRANSFERASE INCREASED [None]
  - HYPOXIA [None]
  - PULMONARY OEDEMA [None]
